FAERS Safety Report 9918040 (Version 1)
Quarter: 2014Q1

REPORT INFORMATION
  Report Type: Spontaneous
  Country: US (occurrence: US)
  Receive Date: 20140222
  Receipt Date: 20140222
  Transmission Date: 20141002
  Serious: Yes (Hospitalization, Other)
  Sender: FDA-Public Use
  Company Number: US-009507513-1402USA008839

PATIENT
  Age: 59 Year
  Sex: Male

DRUGS (1)
  1. PRINIVIL [Suspect]
     Dosage: 10 MG, BID
     Route: 048
     Dates: start: 201310, end: 20140205

REACTIONS (4)
  - Pancreatitis [Recovering/Resolving]
  - Diabetes mellitus [Unknown]
  - Nephropathy [Unknown]
  - Blood potassium increased [Unknown]
